FAERS Safety Report 18972911 (Version 6)
Quarter: 2022Q1

REPORT INFORMATION
  Report Type: Report from Study
  Country: CA (occurrence: CA)
  Receive Date: 20210305
  Receipt Date: 20220221
  Transmission Date: 20220423
  Serious: Yes (Life-Threatening)
  Sender: FDA-Public Use
  Company Number: CA-JNJFOC-20210302345

PATIENT
  Sex: Female

DRUGS (10)
  1. IMBRUVICA [Suspect]
     Active Substance: IBRUTINIB
     Indication: Waldenstrom^s macroglobulinaemia
     Route: 048
  2. IMBRUVICA [Suspect]
     Active Substance: IBRUTINIB
     Dosage: DAY 1 AND 2
     Route: 048
  3. IMBRUVICA [Suspect]
     Active Substance: IBRUTINIB
     Dosage: DAY 3
     Route: 048
     Dates: start: 201910
  4. IMBRUVICA [Suspect]
     Active Substance: IBRUTINIB
     Dosage: DAY 1 AND 2
     Route: 048
     Dates: start: 202001, end: 202001
  5. IMBRUVICA [Suspect]
     Active Substance: IBRUTINIB
     Route: 048
     Dates: start: 202001
  6. IMBRUVICA [Suspect]
     Active Substance: IBRUTINIB
     Dosage: DAY 1 AND 2
     Route: 048
     Dates: start: 202102, end: 202102
  7. IMBRUVICA [Suspect]
     Active Substance: IBRUTINIB
     Route: 048
     Dates: start: 202102
  8. IMBRUVICA [Suspect]
     Active Substance: IBRUTINIB
     Route: 048
     Dates: start: 20190507
  9. IMBRUVICA [Suspect]
     Active Substance: IBRUTINIB
     Dosage: AND THEN 280MG ONCE DAILY ON DAYS 2 AND 3, THEN REPEAT CYCLE
     Route: 048
  10. IMBRUVICA [Suspect]
     Active Substance: IBRUTINIB
     Route: 048

REACTIONS (16)
  - Idiopathic pulmonary fibrosis [Not Recovered/Not Resolved]
  - Blood immunoglobulin M increased [Not Recovered/Not Resolved]
  - Cystitis interstitial [Unknown]
  - Ocular discomfort [Not Recovered/Not Resolved]
  - Flank pain [Recovering/Resolving]
  - Headache [Not Recovered/Not Resolved]
  - Malaise [Recovering/Resolving]
  - Back pain [Recovering/Resolving]
  - Blood pressure increased [Recovering/Resolving]
  - Fatigue [Recovering/Resolving]
  - Contusion [Unknown]
  - Muscle spasms [Unknown]
  - Dyspepsia [Unknown]
  - Conjunctivitis [Unknown]
  - Stomatitis [Unknown]
  - Urinary tract infection [Unknown]
